FAERS Safety Report 22056183 (Version 1)
Quarter: 2023Q1

REPORT INFORMATION
  Report Type: Spontaneous
  Country: US (occurrence: US)
  Receive Date: 20230302
  Receipt Date: 20230302
  Transmission Date: 20230417
  Serious: No
  Sender: FDA-Public Use
  Company Number: US-BRAINTREE LABORATORIES, INC.-2022BTE00983

PATIENT
  Age: 74 Year
  Sex: Male

DRUGS (12)
  1. SUTAB [Suspect]
     Active Substance: MAGNESIUM SULFATE\POTASSIUM CHLORIDE\SODIUM SULFATE
     Indication: Colonoscopy
     Dosage: 2 X 12 TABLETS 1X
     Route: 048
     Dates: start: 20221126, end: 20221127
  2. CARVEDILOL [Concomitant]
     Active Substance: CARVEDILOL
  3. POTASSIUM [Concomitant]
     Active Substance: POTASSIUM
  4. XARELTO [Concomitant]
     Active Substance: RIVAROXABAN
  5. OMEPRAZOLE [Concomitant]
     Active Substance: OMEPRAZOLE
  6. AMIODARONE [Concomitant]
     Active Substance: AMIODARONE
  7. METFORMIN [Concomitant]
     Active Substance: METFORMIN HYDROCHLORIDE
  8. CILOSTAZOL [Concomitant]
     Active Substance: CILOSTAZOL
  9. LASIX [Concomitant]
     Active Substance: FUROSEMIDE
  10. ASPIRIN [Concomitant]
     Active Substance: ASPIRIN
  11. TRELEGY ELLIPTA [Concomitant]
     Active Substance: FLUTICASONE FUROATE\UMECLIDINIUM BROMIDE\VILANTEROL TRIFENATATE
  12. REPATHA [Concomitant]
     Active Substance: EVOLOCUMAB

REACTIONS (1)
  - Drug ineffective [Recovered/Resolved]

NARRATIVE: CASE EVENT DATE: 20221128
